FAERS Safety Report 21078315 (Version 1)
Quarter: 2022Q3

REPORT INFORMATION
  Report Type: Report from Study
  Country: US (occurrence: US)
  Receive Date: 20220713
  Receipt Date: 20220713
  Transmission Date: 20221027
  Serious: Yes (Life-Threatening)
  Sender: FDA-Public Use
  Company Number: US-SA-2019SA339964

PATIENT
  Age: 31 Year
  Sex: Male

DRUGS (1)
  1. DILTIAZEM HYDROCHLORIDE [Suspect]
     Active Substance: DILTIAZEM HYDROCHLORIDE
     Indication: Product used for unknown indication
     Route: 065

REACTIONS (8)
  - Acute lung injury [Unknown]
  - Pneumonia aspiration [Unknown]
  - Hepatotoxicity [Unknown]
  - Coagulopathy [Unknown]
  - Blister [Unknown]
  - Hypotension [Unknown]
  - Bradycardia [Unknown]
  - Atrioventricular block [Unknown]
